FAERS Safety Report 6996572-3 (Version None)
Quarter: 2010Q3

REPORT INFORMATION
  Report Type: 
  Country: None (occurrence: None)
  Receive Date: 20100918
  Receipt Date: 20090327
  Transmission Date: 20110219
  Serious: No
  Sender: FDA-Public Use
  Company Number: US-WYE-H08749609

PATIENT
  Sex: Female
  Weight: 74 kg

DRUGS (6)
  1. CONJUGATED ESTROGENS [Suspect]
     Indication: HOT FLUSH
     Route: 048
     Dates: start: 20050327, end: 20090320
  2. VICODIN [Concomitant]
  3. LORTAB [Concomitant]
  4. XANAX [Concomitant]
  5. PROZAC [Concomitant]
  6. TOPAMAX [Concomitant]

REACTIONS (4)
  - ALOPECIA [None]
  - DRUG DISPENSING ERROR [None]
  - OEDEMA PERIPHERAL [None]
  - WEIGHT INCREASED [None]
